FAERS Safety Report 21109281 (Version 5)
Quarter: 2023Q1

REPORT INFORMATION
  Report Type: Spontaneous
  Country: JP (occurrence: JP)
  Receive Date: 20220721
  Receipt Date: 20230315
  Transmission Date: 20230417
  Serious: Yes (Hospitalization, Other)
  Sender: FDA-Public Use
  Company Number: JP-ALXN-A202204259AA

PATIENT
  Age: 38 Year
  Sex: Female

DRUGS (10)
  1. ACETAMINOPHEN [Suspect]
     Active Substance: ACETAMINOPHEN
     Indication: Pyrexia
     Dosage: UNK
     Route: 048
  2. ACETAMINOPHEN [Suspect]
     Active Substance: ACETAMINOPHEN
     Indication: COVID-19
     Dosage: UNK
     Route: 065
  3. ACETAMINOPHEN [Suspect]
     Active Substance: ACETAMINOPHEN
     Indication: Headache
  4. PREDONINE [Suspect]
     Active Substance: PREDNISOLONE
     Indication: Myasthenia gravis
     Dosage: 7 MG, UNK
     Route: 065
     Dates: start: 201702
  5. PROGRAF [Suspect]
     Active Substance: TACROLIMUS
     Indication: Myasthenia gravis
     Dosage: UNK
     Route: 065
     Dates: start: 201703
  6. SOLIRIS [Suspect]
     Active Substance: ECULIZUMAB
     Dosage: 1200 MG, Q2W
     Route: 042
     Dates: start: 20220720, end: 20221102
  7. SOLIRIS [Suspect]
     Active Substance: ECULIZUMAB
     Dosage: 1200 MG, Q2W
     Route: 042
     Dates: start: 20220427, end: 20220706
  8. SOLIRIS [Suspect]
     Active Substance: ECULIZUMAB
     Dosage: 1200 MG, Q2W
     Route: 042
     Dates: start: 20221130, end: 202212
  9. SOLIRIS [Suspect]
     Active Substance: ECULIZUMAB
     Indication: Myasthenia gravis
     Dosage: 900 MG, QW
     Route: 042
     Dates: start: 20220323, end: 20220330
  10. SOLIRIS [Suspect]
     Active Substance: ECULIZUMAB
     Dosage: 900 MG, QW
     Route: 042
     Dates: start: 20220413, end: 20220420

REACTIONS (7)
  - COVID-19 [Recovered/Resolved]
  - Pyrexia [Recovered/Resolved]
  - Eyelid ptosis [Recovering/Resolving]
  - SARS-CoV-2 test positive [Unknown]
  - Menstruation delayed [Recovered/Resolved]
  - Infusion related reaction [Recovering/Resolving]
  - Vomiting [Recovered/Resolved]

NARRATIVE: CASE EVENT DATE: 20220323
